FAERS Safety Report 7447090-X (Version None)
Quarter: 2011Q2

REPORT INFORMATION
  Report Type: 
  Country: None (occurrence: None)
  Receive Date: 20110429
  Receipt Date: 20110421
  Transmission Date: 20111010
  Serious: Yes (Hospitalization, Other)
  Sender: FDA-Public Use
  Company Number: US-ROCHE-722613

PATIENT
  Sex: Male
  Weight: 61.2 kg

DRUGS (3)
  1. ACCUTANE [Suspect]
     Route: 048
     Dates: start: 20030916, end: 20040204
  2. ADVIL LIQUI-GELS [Concomitant]
  3. ACCUTANE [Suspect]
     Indication: ACNE
     Route: 048
     Dates: start: 20010316, end: 20010801

REACTIONS (8)
  - CROHN'S DISEASE [None]
  - NEPHROLITHIASIS [None]
  - CHAPPED LIPS [None]
  - SMALL INTESTINAL OBSTRUCTION [None]
  - ARTHRALGIA [None]
  - INFLAMMATORY BOWEL DISEASE [None]
  - BLOOD ALKALINE PHOSPHATASE INCREASED [None]
  - IRRITABLE BOWEL SYNDROME [None]
